FAERS Safety Report 16791091 (Version 1)
Quarter: 2019Q3

REPORT INFORMATION
  Report Type: Spontaneous
  Country: BR (occurrence: BR)
  Receive Date: 20190910
  Receipt Date: 20190910
  Transmission Date: 20191005
  Serious: Yes (Death, Hospitalization)
  Sender: FDA-Public Use
  Company Number: BR-CELGENEUS-BRA-20190901993

PATIENT
  Age: 76 Year
  Sex: Female

DRUGS (1)
  1. VIDAZA [Suspect]
     Active Substance: AZACITIDINE
     Indication: MYELODYSPLASTIC SYNDROME
     Dosage: 100 MILLIGRAM
     Route: 065
     Dates: start: 20181219, end: 20190825

REACTIONS (8)
  - Transformation to acute myeloid leukaemia [Fatal]
  - Sepsis [Fatal]
  - Dysphagia [Unknown]
  - Back pain [Unknown]
  - Pain [Unknown]
  - Pneumonia [Fatal]
  - Drug ineffective [Unknown]
  - Asthenia [Unknown]

NARRATIVE: CASE EVENT DATE: 20190815
